FAERS Safety Report 5545896-5 (Version None)
Quarter: 2007Q4

REPORT INFORMATION
  Report Type: 
  Country: None (occurrence: None)
  Receive Date: 20071211
  Receipt Date: 20071207
  Transmission Date: 20080405
  Serious: Yes (Other)
  Sender: FDA-Public Use
  Company Number: US-GENENTECH-246690

PATIENT
  Sex: Female

DRUGS (2)
  1. AVASTIN [Suspect]
     Indication: GLIOBLASTOMA MULTIFORME
  2. IRINOTECAN HCL [Concomitant]
     Indication: GLIOBLASTOMA MULTIFORME

REACTIONS (1)
  - HAEMOLYTIC ANAEMIA [None]
